FAERS Safety Report 8137515-9 (Version None)
Quarter: 2012Q1

REPORT INFORMATION
  Report Type: 
  Country: None (occurrence: None)
  Receive Date: 20120215
  Receipt Date: 20120204
  Transmission Date: 20120608
  Serious: Yes (Other)
  Sender: FDA-Public Use
  Company Number: CA-JNJFOC-20120203385

PATIENT
  Sex: Female
  Weight: 63 kg

DRUGS (10)
  1. REMICADE [Suspect]
     Route: 042
     Dates: start: 20100601
  2. RAMIPRIL [Concomitant]
     Route: 065
  3. MESALAMINE [Concomitant]
     Route: 065
  4. METFORMIN HCL [Concomitant]
     Route: 065
  5. PREDNISONE TAB [Concomitant]
     Route: 065
  6. GLYBURIDE [Concomitant]
     Route: 065
  7. TRITEREN [Concomitant]
     Route: 065
  8. PENTASA [Concomitant]
     Route: 065
  9. LANSOPRAZOLE [Concomitant]
     Route: 065
  10. REMICADE [Suspect]
     Indication: COLITIS ULCERATIVE
     Route: 042
     Dates: start: 20120204

REACTIONS (6)
  - TACHYCARDIA [None]
  - FLUSHING [None]
  - COUGH [None]
  - HYPERTENSION [None]
  - CHILLS [None]
  - INFUSION RELATED REACTION [None]
